FAERS Safety Report 8270621-7 (Version None)
Quarter: 2012Q2

REPORT INFORMATION
  Report Type: 
  Country: None (occurrence: None)
  Receive Date: 20120410
  Receipt Date: 20120403
  Transmission Date: 20120825
  Serious: Yes (Hospitalization)
  Sender: FDA-Public Use
  Company Number: JP-BAYER-2012-028261

PATIENT
  Age: 72 Year
  Sex: Male
  Weight: 68 kg

DRUGS (27)
  1. NEXAVAR [Suspect]
     Indication: HEPATIC NEOPLASM MALIGNANT
     Dosage: 200 MG, BID
     Route: 048
     Dates: start: 20120308, end: 20120314
  2. LANSOPRAZOLE [Concomitant]
     Dosage: 15 MG, OM
     Route: 048
  3. WARFARIN SODIUM [Concomitant]
     Dosage: 2.5 MG, QD
     Route: 048
  4. ATELEC [Concomitant]
     Dosage: 20 MG, OM
     Route: 048
  5. KERATINAMIN [Concomitant]
     Route: 061
  6. ASPIRIN [Concomitant]
     Dosage: 100 MG, OM
     Route: 048
  7. MAGNESIUM SULFATE [Concomitant]
     Dosage: DAILY DOSE 990 MG
     Route: 048
  8. MAGNESIUM SULFATE [Concomitant]
     Dosage: DAILY DOSE 660 MG
     Route: 048
  9. DIART [Concomitant]
     Dosage: 60 MG, OM
     Route: 048
  10. BISOPROLOL FUMARATE [Concomitant]
     Dosage: 0.625 MG, OM
     Route: 048
  11. ALDACTONE [Concomitant]
     Dosage: 25 MG, OM
     Route: 048
  12. LOXONIN [Concomitant]
     Dosage: DAILY DOSE 120 MG
     Route: 048
  13. COTRIM [Concomitant]
     Dosage: 1 DF, QD
     Route: 048
  14. VERAPAMIL HCL [Concomitant]
     Dosage: DAILY DOSE 240 MG
     Route: 048
  15. VERAPAMIL HCL [Concomitant]
     Dosage: 40 MG, QD
     Route: 048
  16. ALLOPURINOL [Concomitant]
     Dosage: 100 MG, OM
     Route: 048
  17. ARGAMATE [Concomitant]
     Dosage: DAILY DOSE 50 G
     Route: 048
  18. UREPEARL [Concomitant]
     Dosage: UNK
     Route: 061
  19. NEXAVAR [Suspect]
     Dosage: DAILY DOSE 600 MG
     Route: 048
     Dates: start: 20120315, end: 20120321
  20. AMARYL [Concomitant]
     Dosage: 0.5 MG, OM
     Route: 048
  21. VERAPAMIL HCL [Concomitant]
     Dosage: DAILY DOSE 120 MG
     Route: 048
  22. ACETAMINOPHEN [Concomitant]
     Indication: PAIN
     Dosage: 400 MG, PRN
     Route: 048
  23. ALENDRONATE SODIUM [Concomitant]
     Dosage: 35 MG, OW
     Route: 048
  24. TRIAZOLAM [Concomitant]
     Indication: INSOMNIA
     Dosage: 0.125 MG, PRN
     Route: 048
  25. ARGAMATE [Concomitant]
     Dosage: DAILY DOSE 150 G
     Route: 048
  26. LOSARTAN POTASSIUM AND HYDROCHLOROTHIAZIDE [Concomitant]
     Dosage: 1 DF, OM
     Route: 048
  27. SELBEX [Concomitant]
     Dosage: DAILY DOSE 50 MG
     Route: 048

REACTIONS (1)
  - HENOCH-SCHONLEIN PURPURA [None]
